FAERS Safety Report 7108204-4 (Version None)
Quarter: 2010Q4

REPORT INFORMATION
  Report Type: 
  Country: None (occurrence: None)
  Receive Date: 20101117
  Receipt Date: 20101103
  Transmission Date: 20110411
  Serious: Yes (Other)
  Sender: FDA-Public Use
  Company Number: PHHY2010AT74137

PATIENT
  Sex: Female

DRUGS (2)
  1. TASIGNA [Suspect]
     Indication: CHRONIC MYELOID LEUKAEMIA
     Dosage: 800 MG DAILY
     Route: 048
     Dates: start: 20080201
  2. ANTIHYPERTENSIVES [Concomitant]

REACTIONS (4)
  - CEREBRAL ISCHAEMIA [None]
  - HEADACHE [None]
  - MOTOR DYSFUNCTION [None]
  - SENSORY LOSS [None]
